FAERS Safety Report 25883419 (Version 2)
Quarter: 2025Q4

REPORT INFORMATION
  Report Type: Report from Study
  Country: CA (occurrence: CA)
  Receive Date: 20251006
  Receipt Date: 20251204
  Transmission Date: 20260117
  Serious: Yes (Hospitalization)
  Sender: ROCHE
  Company Number: CA-ROCHE-10000402404

PATIENT
  Age: 43 Year
  Sex: Female

DRUGS (24)
  1. RITUXAN [Suspect]
     Active Substance: RITUXIMAB
     Indication: Myasthenia gravis
     Dosage: MOREDOSAGEINFO IS NO PIRS RECEIVED
     Route: 042
     Dates: start: 20210915, end: 20211007
  2. RITUXAN [Suspect]
     Active Substance: RITUXIMAB
     Dosage: DRUG DOSE FIRST ADMINISTERED IS 746 MG MILLIGRAM(S)
     Route: 042
     Dates: start: 20220812
  3. RITUXAN [Suspect]
     Active Substance: RITUXIMAB
     Dosage: DRUG DOSE FIRST ADMINISTERED IS 759.3 MG MILLIGRAM(S)
     Route: 042
     Dates: start: 20221207, end: 20221214
  4. RITUXAN [Suspect]
     Active Substance: RITUXIMAB
     Dosage: DRUG DOSE FIRST ADMINISTERED IS 759 MG MILLIGRAM(S)
     Route: 042
     Dates: start: 20221220, end: 20221228
  5. RITUXAN [Suspect]
     Active Substance: RITUXIMAB
     Dosage: DRUG DOSE FIRST ADMINISTERED IS 769.5 MG MILLIGRAM(S)
     Route: 042
     Dates: start: 20230607, end: 20230628
  6. RITUXAN [Suspect]
     Active Substance: RITUXIMAB
     Dosage: DRUG DOSE FIRST ADMINISTERED IS 769.5 MG MILLIGRAM(S)
     Route: 042
     Dates: start: 20231207, end: 20231228
  7. RITUXAN [Suspect]
     Active Substance: RITUXIMAB
     Dosage: DRUG DOSE FIRST ADMINISTERED IS 769.5 MG MILLIGRAM(S)
     Route: 042
     Dates: start: 20240610, end: 20240702
  8. RITUXAN [Suspect]
     Active Substance: RITUXIMAB
     Dosage: DRUG DOSE FIRST ADMINISTERED IS 769.5 MG MILLIGRAM(S)
     Route: 042
     Dates: start: 20250103, end: 20250124
  9. RITUXAN [Suspect]
     Active Substance: RITUXIMAB
     Dosage: DRUG DOSE FIRST ADMINISTERED IS 769.5 MG MILLIGRAM(S)
     Route: 042
     Dates: start: 20250721, end: 20250811
  10. RITUXAN [Suspect]
     Active Substance: RITUXIMAB
     Route: 042
  11. BENADRYL [Concomitant]
     Active Substance: DIPHENHYDRAMINE HYDROCHLORIDE
     Indication: Premedication
     Route: 048
  12. CORTISONE [Concomitant]
     Active Substance: CORTISONE
  13. DULOXETINE [Concomitant]
     Active Substance: DULOXETINE
     Indication: Arthralgia
     Dates: start: 202501
  14. ORTHO EVRA [Concomitant]
     Active Substance: ETHINYL ESTRADIOL\NORELGESTROMIN
  15. MESTINON [Concomitant]
     Active Substance: PYRIDOSTIGMINE BROMIDE
  16. OMEPRAZOLE [Concomitant]
     Active Substance: OMEPRAZOLE
  17. PAXLOVID [Concomitant]
     Active Substance: NIRMATRELVIR\RITONAVIR
     Indication: COVID-19
  18. PREDNISONE [Concomitant]
     Active Substance: PREDNISONE
  19. RISEDRONATE SODIUM [Concomitant]
     Active Substance: RISEDRONATE SODIUM
  20. SOLU-MEDROL [Concomitant]
     Active Substance: METHYLPREDNISOLONE SODIUM SUCCINATE
     Indication: Premedication
     Dosage: DRUG DOSE FIRST ADMINISTERED IS 100 MG MILLIGRAM(S)
     Route: 042
  21. SYMBICORT [Concomitant]
     Active Substance: BUDESONIDE\FORMOTEROL FUMARATE DIHYDRATE
     Indication: Asthma
     Dates: start: 2025
  22. TYLENOL [Concomitant]
     Active Substance: ACETAMINOPHEN
     Indication: Premedication
     Dosage: DRUG DOSE FIRST ADMINISTERED IS 650 MG MILLIGRAM(S)
     Route: 048
  23. PREDNISONE [Concomitant]
     Active Substance: PREDNISONE
  24. BRICANYL [Concomitant]
     Active Substance: TERBUTALINE SULFATE
     Indication: Bronchospasm

REACTIONS (1)
  - Neutropenia [Unknown]

NARRATIVE: CASE EVENT DATE: 20250901
